FAERS Safety Report 8923144 (Version 2)
Quarter: 2012Q4

REPORT INFORMATION
  Report Type: Spontaneous
  Country: US (occurrence: None)
  Receive Date: 20121115
  Receipt Date: 20121121
  Transmission Date: 20130627
  Serious: Yes (Other)
  Sender: FDA-Public Use
  Company Number: M-12-037

PATIENT
  Age: 84 Year
  Sex: Male

DRUGS (11)
  1. DIGOXIN [Suspect]
     Indication: HEART DISORDER
     Route: 048
  2. ATENOLOL [Concomitant]
  3. LISINIPRIL [Concomitant]
  4. IMDUR [Concomitant]
  5. LASIX [Concomitant]
  6. PRAVASTATIN SODIUM [Concomitant]
  7. MAGNESIUM OXIDE [Concomitant]
  8. MULTIVITAMIN [Concomitant]
  9. VITAMIN C [Concomitant]
  10. LORAZEPAM [Concomitant]
  11. TYLENOL [Concomitant]

REACTIONS (8)
  - Chest pain [None]
  - Musculoskeletal pain [None]
  - Musculoskeletal pain [None]
  - Dizziness [None]
  - Dyspnoea [None]
  - Cardioactive drug level decreased [None]
  - Product substitution issue [None]
  - Tachycardia [None]
